FAERS Safety Report 10350310 (Version 1)
Quarter: 2014Q3

REPORT INFORMATION
  Report Type: Spontaneous
  Country: US (occurrence: US)
  Receive Date: 20140730
  Receipt Date: 20140730
  Transmission Date: 20150326
  Serious: No
  Sender: FDA-Public Use
  Company Number: US-ABBVIE-13P-163-1182286-00

PATIENT
  Age: 67 Year
  Sex: Male
  Weight: 99.88 kg

DRUGS (5)
  1. EFFIENT [Concomitant]
     Active Substance: PRASUGREL HYDROCHLORIDE
     Indication: THROMBOSIS PROPHYLAXIS
  2. ZETIA [Concomitant]
     Active Substance: EZETIMIBE
     Indication: BLOOD CHOLESTEROL INCREASED
  3. NIASPAN [Suspect]
     Active Substance: NIACIN
     Indication: BLOOD CHOLESTEROL INCREASED
     Dosage: AT BEDTIME
     Dates: start: 20131219
  4. ASPIRIN. [Concomitant]
     Active Substance: ASPIRIN
     Indication: THROMBOSIS PROPHYLAXIS
     Dates: end: 20131218
  5. ASPIRIN. [Concomitant]
     Active Substance: ASPIRIN
     Dates: start: 20131219

REACTIONS (2)
  - Heart rate increased [Recovered/Resolved]
  - Burning sensation [Recovered/Resolved]

NARRATIVE: CASE EVENT DATE: 20131219
